FAERS Safety Report 7033234-0 (Version None)
Quarter: 2010Q4

REPORT INFORMATION
  Report Type: 
  Country: None (occurrence: None)
  Receive Date: 20101007
  Receipt Date: 20101001
  Transmission Date: 20110411
  Serious: No
  Sender: FDA-Public Use
  Company Number: US-B.I. PHARMACEUTICALS,INC./RIDGEFIELD-2010-BP-11179BP

PATIENT
  Sex: Female

DRUGS (2)
  1. ZANTAC 150 [Suspect]
     Indication: NAUSEA
     Dosage: 300 MG
     Route: 048
     Dates: start: 20100924
  2. COMPAZINE [Concomitant]
     Indication: NAUSEA

REACTIONS (1)
  - DYSPEPSIA [None]
